APPROVED DRUG PRODUCT: APIXABAN
Active Ingredient: APIXABAN
Strength: 5MG
Dosage Form/Route: TABLET;ORAL
Application: A210091 | Product #002
Applicant: APOTEX INC
Approved: Feb 16, 2024 | RLD: No | RS: No | Type: DISCN